FAERS Safety Report 5860015-3 (Version None)
Quarter: 2008Q3

REPORT INFORMATION
  Report Type: 
  Country: None (occurrence: None)
  Receive Date: 20080827
  Receipt Date: 20080822
  Transmission Date: 20090109
  Serious: Yes (Life-Threatening)
  Sender: FDA-Public Use
  Company Number: JP-SANOFI-SYNTHELABO-F01200801359

PATIENT
  Sex: Female
  Weight: 60.5 kg

DRUGS (6)
  1. DECADRON SRC [Concomitant]
     Dosage: UNK
     Dates: start: 20071009, end: 20080423
  2. KYTRIL [Concomitant]
     Dosage: UNK
     Dates: start: 20071009, end: 20080423
  3. AVASTIN [Suspect]
     Route: 041
     Dates: start: 20071217, end: 20071217
  4. FLUOROURACIL [Suspect]
     Dosage: UNK
     Route: 042
     Dates: start: 20071217, end: 20071218
  5. LEUCOVORIN CALCIUM [Suspect]
     Dosage: UNK
     Route: 041
     Dates: start: 20071217, end: 20071218
  6. ELPLAT [Suspect]
     Indication: COLON CANCER METASTATIC
     Dosage: UNK
     Route: 041
     Dates: start: 20071217, end: 20071217

REACTIONS (1)
  - BONE MARROW FAILURE [None]
